FAERS Safety Report 7792722-X (Version None)
Quarter: 2011Q4

REPORT INFORMATION
  Report Type: 
  Country: None (occurrence: None)
  Receive Date: 20111003
  Receipt Date: 20110922
  Transmission Date: 20120403
  Serious: Yes (Hospitalization)
  Sender: FDA-Public Use
  Company Number: US-MYLANLABS-2011S1019929

PATIENT
  Age: 49 Year
  Sex: Female

DRUGS (4)
  1. ERBITUX [Suspect]
     Indication: NON-SMALL CELL LUNG CANCER
     Route: 042
     Dates: start: 20110725, end: 20110829
  2. TAXOL [Suspect]
     Indication: NON-SMALL CELL LUNG CANCER
     Route: 042
     Dates: start: 20110725, end: 20110829
  3. CARBOPLATIN [Suspect]
     Indication: NON-SMALL CELL LUNG CANCER
     Route: 042
     Dates: start: 20110725, end: 20110829
  4. DOXYCYCLINE [Suspect]

REACTIONS (4)
  - DYSPHONIA [None]
  - OESOPHAGEAL PAIN [None]
  - VOMITING [None]
  - OESOPHAGITIS [None]
